FAERS Safety Report 4732473-9 (Version None)
Quarter: 2005Q3

REPORT INFORMATION
  Report Type: 
  Country: None (occurrence: None)
  Receive Date: 20050803
  Receipt Date: 20050722
  Transmission Date: 20060218
  Serious: Yes (Hospitalization)
  Sender: FDA-Public Use
  Company Number: FR-JNJFOC-20050800092

PATIENT
  Age: 81 Year
  Sex: Female

DRUGS (10)
  1. TOPALGIC [Suspect]
     Indication: DRUG USE FOR UNKNOWN INDICATION
     Route: 048
  2. LASILIX [Suspect]
     Indication: ESSENTIAL HYPERTENSION
     Route: 048
  3. LORAZEPAM [Suspect]
     Indication: ANXIETY
     Route: 048
  4. PROZAC [Suspect]
     Indication: DEPRESSION
     Route: 048
  5. DIFFU K [Concomitant]
     Route: 048
  6. MOPRAL [Concomitant]
     Route: 048
  7. NITROGLYCERIN [Concomitant]
     Route: 062
  8. PREVISCAN [Concomitant]
     Route: 048
  9. ALDACTONE [Concomitant]
     Route: 048
  10. LEXOMIL [Concomitant]
     Route: 048

REACTIONS (2)
  - CONFUSIONAL STATE [None]
  - HYPONATRAEMIA [None]
